FAERS Safety Report 8067939-X (Version None)
Quarter: 2012Q1

REPORT INFORMATION
  Report Type: 
  Country: None (occurrence: None)
  Receive Date: 20120124
  Receipt Date: 20110908
  Transmission Date: 20120608
  Serious: No
  Sender: FDA-Public Use
  Company Number: US-AMGEN-USASP2011041425

PATIENT
  Age: 69 Year
  Sex: Female
  Weight: 52.1 kg

DRUGS (5)
  1. PROLIA [Suspect]
     Dosage: 60 MG, Q6MO
     Route: 058
     Dates: start: 20101001
  2. PREMPRO [Concomitant]
     Dosage: UNK
     Dates: start: 20101201
  3. PROLIA [Suspect]
     Dosage: 60 MG, Q6MO
     Route: 058
     Dates: start: 20101001
  4. PROLIA [Suspect]
     Indication: OSTEOPOROSIS POSTMENOPAUSAL
     Dosage: 60 MG, Q6MO
     Route: 058
     Dates: start: 20101001
  5. SYNTHROID [Concomitant]
     Dosage: 0.1 UNK, UNK

REACTIONS (2)
  - RASH [None]
  - PRURITUS [None]
